FAERS Safety Report 4867941-2 (Version None)
Quarter: 2005Q4

REPORT INFORMATION
  Report Type: 
  Country: None (occurrence: None)
  Receive Date: 20051227
  Receipt Date: 20051216
  Transmission Date: 20060501
  Serious: Yes (Hospitalization)
  Sender: FDA-Public Use
  Company Number: AZACH200500369

PATIENT
  Age: 81 Year
  Sex: Male
  Weight: 78 kg

DRUGS (4)
  1. VIDAZA [Suspect]
     Indication: MYELODYSPLASTIC SYNDROME
     Dosage: 120 MG (120 MG, ONCE DAILY X  7 DAYS), SUBCUTANEOUS
     Route: 058
     Dates: start: 20051004, end: 20051010
  2. ATENOLOL [Concomitant]
  3. TORASEMIDE SODIUM (TORASEMIDE SODIUM) [Concomitant]
  4. FOLIC ACID [Concomitant]

REACTIONS (12)
  - AORTIC ARTERIOSCLEROSIS [None]
  - ATRIAL FIBRILLATION [None]
  - CEREBROVASCULAR ACCIDENT [None]
  - CONDITION AGGRAVATED [None]
  - CONFUSIONAL STATE [None]
  - EMBOLISM [None]
  - FALL [None]
  - PERFORMANCE STATUS DECREASED [None]
  - RENAL IMPAIRMENT [None]
  - THROMBOCYTOPENIA [None]
  - URINARY INCONTINENCE [None]
  - UROSEPSIS [None]
